FAERS Safety Report 4818248-0 (Version None)
Quarter: 2005Q4

REPORT INFORMATION
  Report Type: 
  Country: None (occurrence: None)
  Receive Date: 20051102
  Receipt Date: 20051024
  Transmission Date: 20060501
  Serious: Yes (Other)
  Sender: FDA-Public Use
  Company Number: GB-AVENTIS-200519487GDDC

PATIENT
  Age: 58 Year
  Sex: Female

DRUGS (12)
  1. ARAVA [Suspect]
     Dosage: DOSE: UNK
  2. FERROUS SULFATE TAB [Concomitant]
     Dosage: DOSE: UNK
  3. LANSOPRAZOLE [Concomitant]
     Dosage: DOSE: UNK
  4. PREDNISOLONE [Concomitant]
     Dosage: DOSE: UNK
  5. CALCICHEW D3 [Concomitant]
     Dosage: DOSE: UNK
  6. FORTECORTIN [Concomitant]
     Dosage: DOSE: UNK
  7. ALENDRONIC ACID [Concomitant]
     Dosage: DOSE: UNK
  8. AMITRIPTYLINE HCL [Concomitant]
     Dosage: DOSE: UNK
  9. DIHYDROCODEINE [Concomitant]
     Dosage: DOSE: UNK
  10. DICLOFENAC [Concomitant]
     Dosage: DOSE: UNK
  11. GLUCOSAMINE [Concomitant]
     Dosage: DOSE: UNK
  12. CALCICHEW-D3 [Concomitant]
     Dosage: DOSE: UNK

REACTIONS (3)
  - ASPARTATE AMINOTRANSFERASE INCREASED [None]
  - GAMMA-GLUTAMYLTRANSFERASE INCREASED [None]
  - LIVER FUNCTION TEST ABNORMAL [None]
